FAERS Safety Report 7357153-5 (Version None)
Quarter: 2011Q1

REPORT INFORMATION
  Report Type: 
  Country: None (occurrence: None)
  Receive Date: 20110308
  Receipt Date: 20110222
  Transmission Date: 20110831
  Serious: Yes (Hospitalization)
  Sender: FDA-Public Use
  Company Number: 027905

PATIENT
  Sex: Female
  Weight: 130 kg

DRUGS (3)
  1. VIMPAT [Suspect]
     Indication: EPILEPSY
     Dosage: 150 MG BID ORAL
     Route: 048
     Dates: start: 20100210
  2. TOPAMAX [Concomitant]
  3. LAMOTRIGINE [Concomitant]

REACTIONS (8)
  - UMBILICAL HERNIA [None]
  - HAEMOGLOBIN DECREASED [None]
  - BLOOD CALCIUM DECREASED [None]
  - MEAN CELL HAEMOGLOBIN CONCENTRATION DECREASED [None]
  - NEUTROPHIL PERCENTAGE INCREASED [None]
  - BLOOD GLUCOSE INCREASED [None]
  - MEAN CELL VOLUME DECREASED [None]
  - LYMPHOCYTE PERCENTAGE DECREASED [None]
